FAERS Safety Report 5857600-1 (Version None)
Quarter: 2008Q3

REPORT INFORMATION
  Report Type: 
  Country: None (occurrence: None)
  Receive Date: 20080825
  Receipt Date: 20080825
  Transmission Date: 20090109
  Serious: No
  Sender: FDA-Public Use
  Company Number: None

PATIENT
  Age: 33 Year
  Sex: Male
  Weight: 127.0072 kg

DRUGS (2)
  1. ZOLOFT [Suspect]
     Indication: DEPRESSION
     Dates: start: 19970501, end: 20000501
  2. ZOLOFT [Suspect]
     Indication: POSTOPERATIVE CARE
     Dates: start: 20060510, end: 20060710

REACTIONS (5)
  - AGGRESSION [None]
  - ANGER [None]
  - FAMILY STRESS [None]
  - PARTNER STRESS [None]
  - PHYSICAL ABUSE [None]
